FAERS Safety Report 18349839 (Version 1)
Quarter: 2020Q4

REPORT INFORMATION
  Report Type: Spontaneous
  Country: US (occurrence: US)
  Receive Date: 20201006
  Receipt Date: 20201006
  Transmission Date: 20210114
  Serious: Yes (Hospitalization)
  Sender: FDA-Public Use
  Company Number: None

PATIENT
  Age: 2 Year
  Sex: Female

DRUGS (2)
  1. PURIXAN [Suspect]
     Active Substance: MERCAPTOPURINE
     Route: 048
     Dates: start: 20190731
  2. PURIXAN [Concomitant]
     Active Substance: MERCAPTOPURINE
     Dates: start: 20190731

REACTIONS (1)
  - Liver disorder [None]

NARRATIVE: CASE EVENT DATE: 20200828
